FAERS Safety Report 11874149 (Version 1)
Quarter: 2015Q4

REPORT INFORMATION
  Report Type: Spontaneous
  Country: US (occurrence: US)
  Receive Date: 20151229
  Receipt Date: 20151229
  Transmission Date: 20160305
  Serious: Yes (Congenital Anomaly, Other)
  Sender: FDA-Public Use
  Company Number: US-CIPLA LTD.-2015US09589

PATIENT

DRUGS (2)
  1. RISPERIDONE. [Suspect]
     Active Substance: RISPERIDONE
     Dosage: UNK
     Route: 064
  2. CLOBAZAM [Suspect]
     Active Substance: CLOBAZAM
     Dosage: MOTHER TOOK CLOBAZAM AFTER FIRST TRIMESTER
     Route: 064

REACTIONS (5)
  - Cleft palate [Unknown]
  - Glossoptosis [Unknown]
  - Micrognathia [Unknown]
  - Foetal exposure during pregnancy [Unknown]
  - Pierre Robin syndrome [Unknown]
